FAERS Safety Report 7144982-6 (Version None)
Quarter: 2010Q4

REPORT INFORMATION
  Report Type: 
  Country: None (occurrence: None)
  Receive Date: 20101208
  Receipt Date: 20101203
  Transmission Date: 20110411
  Serious: Yes (Hospitalization, Other)
  Sender: FDA-Public Use
  Company Number: IT-BRISTOL-MYERS SQUIBB COMPANY-15423395

PATIENT
  Age: 80 Year
  Sex: Male

DRUGS (8)
  1. COUMADIN [Suspect]
     Indication: CARDIAC VALVE PROSTHESIS USER
     Dosage: 1 DF=1 POSOLOGIC UNIT,INTERRUPTED ON 20-OCT-10.
     Dates: start: 20060101
  2. CLEXANE [Suspect]
     Indication: PROPHYLAXIS
     Dosage: 6000 IU AXA SOLN FOR INJ. 1 DF=2 POSOLOGIC UNITS. INTERRUPTED ON 30OCT2010.
  3. FONDAPARINUX SODIUM [Concomitant]
     Indication: PROPHYLAXIS
     Route: 058
     Dates: start: 20101030
  4. ZESTRIL [Concomitant]
  5. PARIET [Concomitant]
     Dosage: 1 DF=1 POSOLOGIC UNIT.
  6. CASODEX [Concomitant]
     Dosage: 1 DF=1 POSOLOGIC UNIT
  7. DILATREND [Concomitant]
     Dosage: 1 DF=1.5 POSOLOGIC UNIT,25 MG TABS
  8. LASIX [Concomitant]
     Dosage: 1 DF=1 POSOLOGIC UNIT,25 MG TABS

REACTIONS (2)
  - CEREBRAL HAEMORRHAGE [None]
  - HEAD INJURY [None]
